FAERS Safety Report 12704391 (Version 5)
Quarter: 2016Q4

REPORT INFORMATION
  Report Type: Report from Study
  Country: CA (occurrence: CA)
  Receive Date: 20160831
  Receipt Date: 20161116
  Transmission Date: 20170207
  Serious: Yes (Hospitalization)
  Sender: FDA-Public Use
  Company Number: CA-BAYER-2016-144204

PATIENT
  Age: 74 Year
  Sex: Female
  Weight: 41 kg

DRUGS (6)
  1. ADEMPAS [Suspect]
     Active Substance: RIOCIGUAT
     Indication: PULMONARY HYPERTENSION
     Dosage: 2 MG, TID
     Route: 048
  2. LASIX [Concomitant]
     Active Substance: FUROSEMIDE
     Dosage: UNK
  3. ADEMPAS [Suspect]
     Active Substance: RIOCIGUAT
     Indication: PULMONARY HYPERTENSION
     Dosage: 1.5 MG, TID
     Route: 048
  4. ADEMPAS [Suspect]
     Active Substance: RIOCIGUAT
     Indication: PULMONARY HYPERTENSION
     Dosage: 2.5 MG, TID
     Route: 048
  5. ADEMPAS [Suspect]
     Active Substance: RIOCIGUAT
     Indication: PULMONARY HYPERTENSION
     Dosage: 1 MG, TID
     Route: 048
     Dates: start: 20160720
  6. HEPARIN [Concomitant]
     Active Substance: HEPARIN SODIUM
     Dosage: UNK

REACTIONS (24)
  - Asthenia [None]
  - Gait disturbance [None]
  - Dizziness [Unknown]
  - Musculoskeletal chest pain [Unknown]
  - Localised infection [None]
  - Dizziness [Unknown]
  - Constipation [Unknown]
  - Dizziness [Not Recovered/Not Resolved]
  - Chest discomfort [Unknown]
  - Dyspnoea [None]
  - Weight increased [Unknown]
  - Dizziness [Recovered/Resolved]
  - Diarrhoea [Unknown]
  - Presyncope [None]
  - Weight increased [None]
  - Abdominal distension [None]
  - Dizziness [Unknown]
  - Hospitalisation [None]
  - Night sweats [None]
  - Dizziness [None]
  - Orthostatic hypotension [Not Recovered/Not Resolved]
  - Dizziness [None]
  - Oedema [None]
  - Weight decreased [None]

NARRATIVE: CASE EVENT DATE: 20160721
